FAERS Safety Report 9176204 (Version 1)
Quarter: 2013Q1

REPORT INFORMATION
  Report Type: Spontaneous
  Country: GR (occurrence: GR)
  Receive Date: 20130321
  Receipt Date: 20130321
  Transmission Date: 20140127
  Serious: Yes (Life-Threatening, Other)
  Sender: FDA-Public Use
  Company Number: GR-BIOGENIDEC-2013BI024872

PATIENT
  Age: 72 Year
  Sex: Male

DRUGS (4)
  1. TYSABRI [Suspect]
     Indication: MULTIPLE SCLEROSIS
     Route: 042
     Dates: start: 2009, end: 201208
  2. GILENYA [Concomitant]
     Route: 048
     Dates: start: 20121221
  3. PREZOLON [Concomitant]
     Route: 048
  4. MODIODAL [Concomitant]
     Route: 048

REACTIONS (2)
  - Encephalitis [Not Recovered/Not Resolved]
  - Mycobacterium tuberculosis complex test positive [Unknown]
